FAERS Safety Report 14677969 (Version 1)
Quarter: 2018Q1

REPORT INFORMATION
  Report Type: Spontaneous
  Country: US (occurrence: US)
  Receive Date: 20180326
  Receipt Date: 20180326
  Transmission Date: 20180509
  Serious: Yes (Other)
  Sender: FDA-Public Use
  Company Number: US-DRREDDYS-USA/USA/18/0097007

PATIENT
  Age: 53 Year
  Sex: Male

DRUGS (3)
  1. ALBUTEROL. [Concomitant]
     Active Substance: ALBUTEROL
     Indication: PRODUCT USED FOR UNKNOWN INDICATION
     Route: 065
  2. LEVOFLOXACIN TABLETS [Suspect]
     Active Substance: LEVOFLOXACIN
     Indication: PRODUCT USED FOR UNKNOWN INDICATION
     Route: 065
  3. ONDANSETRON [Interacting]
     Active Substance: ONDANSETRON
     Indication: PRODUCT USED FOR UNKNOWN INDICATION
     Dosage: SINGLE DOSE
     Route: 042

REACTIONS (2)
  - Electrocardiogram QT prolonged [Unknown]
  - Drug interaction [Unknown]
